FAERS Safety Report 13593405 (Version 1)
Quarter: 2017Q2

REPORT INFORMATION
  Report Type: Spontaneous
  Country: US (occurrence: US)
  Receive Date: 20170530
  Receipt Date: 20170530
  Transmission Date: 20170830
  Serious: No
  Sender: FDA-Public Use
  Company Number: US-TEVA-674396USA

PATIENT
  Age: 69 Year
  Sex: Female

DRUGS (1)
  1. SOTALOL. [Suspect]
     Active Substance: SOTALOL
     Indication: ATRIAL FIBRILLATION
     Route: 065
     Dates: start: 201511, end: 20160620

REACTIONS (5)
  - Alopecia [Unknown]
  - Feeling abnormal [Unknown]
  - Heart rate irregular [Unknown]
  - Hyperhidrosis [Unknown]
  - Blood pressure increased [Unknown]
